FAERS Safety Report 9995828 (Version 1)
Quarter: 2014Q1

REPORT INFORMATION
  Report Type: Spontaneous
  Country: US (occurrence: None)
  Receive Date: 20140310
  Receipt Date: 20140310
  Transmission Date: 20141002
  Serious: Yes (Life-Threatening, Hospitalization)
  Sender: FDA-Public Use
  Company Number: None

PATIENT
  Age: 52 Year
  Sex: Male

DRUGS (2)
  1. BACLOFEN [Suspect]
  2. GABAPENTIN [Suspect]

REACTIONS (2)
  - Loss of consciousness [None]
  - Somnolence [None]
